FAERS Safety Report 6731410-5 (Version None)
Quarter: 2010Q2

REPORT INFORMATION
  Report Type: 
  Country: None (occurrence: None)
  Receive Date: 20100518
  Receipt Date: 20100518
  Transmission Date: 20101027
  Serious: Yes (Hospitalization)
  Sender: FDA-Public Use
  Company Number: None

PATIENT
  Age: 57 Year
  Sex: Male
  Weight: 88 kg

DRUGS (2)
  1. METOCLOPRAMIDE [Suspect]
     Indication: NAUSEA
     Dosage: 20 MG TID PO
     Route: 048
     Dates: start: 20090214, end: 20100214
  2. ZIPRASIDONE HCL [Suspect]
     Indication: SCHIZOAFFECTIVE DISORDER
     Dosage: 80 MG BID PO
     Route: 048
     Dates: start: 20070715, end: 20100214

REACTIONS (6)
  - AZOTAEMIA [None]
  - FEELING JITTERY [None]
  - MUSCLE TWITCHING [None]
  - MYOCLONUS [None]
  - TARDIVE DYSKINESIA [None]
  - VOMITING [None]
